FAERS Safety Report 5017948-X (Version None)
Quarter: 2006Q2

REPORT INFORMATION
  Report Type: 
  Country: None (occurrence: None)
  Receive Date: 20060605
  Receipt Date: 20060104
  Transmission Date: 20061013
  Serious: Yes (Other)
  Sender: FDA-Public Use
  Company Number: GB-GLAXOSMITHKLINE-B0406122A

PATIENT
  Sex: Male

DRUGS (1)
  1. SEROXAT [Suspect]
     Route: 065
     Dates: start: 19980810

REACTIONS (4)
  - AGGRESSION [None]
  - COMPLETED SUICIDE [None]
  - ERECTILE DYSFUNCTION [None]
  - ILL-DEFINED DISORDER [None]
